FAERS Safety Report 15524492 (Version 1)
Quarter: 2018Q4

REPORT INFORMATION
  Report Type: Spontaneous
  Country: US (occurrence: US)
  Receive Date: 20181019
  Receipt Date: 20181019
  Transmission Date: 20190205
  Serious: Yes (Hospitalization, Other)
  Sender: FDA-Public Use
  Company Number: US-ASTRAZENECA-2018SF35128

PATIENT
  Sex: Male
  Weight: 64 kg

DRUGS (11)
  1. CRESTOR [Suspect]
     Active Substance: ROSUVASTATIN CALCIUM
     Indication: BLOOD CHOLESTEROL ABNORMAL
     Route: 048
     Dates: start: 2003
  2. CRESTOR [Suspect]
     Active Substance: ROSUVASTATIN CALCIUM
     Indication: BLOOD CHOLESTEROL ABNORMAL
     Route: 048
     Dates: start: 201809
  3. ISOSORBIDE MONONITRATE. [Concomitant]
     Active Substance: ISOSORBIDE MONONITRATE
     Route: 048
  4. IRON [Concomitant]
     Active Substance: IRON
     Route: 048
     Dates: start: 201710
  5. AREDIS 2 [Concomitant]
     Indication: PROPHYLAXIS
     Dosage: DAILY
     Route: 048
     Dates: start: 2017
  6. AMLODIPINE [Concomitant]
     Active Substance: AMLODIPINE BESYLATE
     Route: 048
  7. AMIODARONE [Concomitant]
     Active Substance: AMIODARONE
     Indication: PROPHYLAXIS
     Route: 048
     Dates: start: 201809
  8. MULTIVITAMIN [Concomitant]
     Active Substance: VITAMINS
     Indication: PROPHYLAXIS
     Dosage: DAILY
     Route: 048
     Dates: start: 201803
  9. CLOPIDOGREL [Concomitant]
     Active Substance: CLOPIDOGREL BISULFATE
     Indication: PROPHYLAXIS
     Route: 048
     Dates: start: 201809
  10. METOPROLOL SUCCINATE. [Suspect]
     Active Substance: METOPROLOL SUCCINATE
     Indication: PROPHYLAXIS
     Route: 048
     Dates: start: 201809
  11. FUROSEMIDE. [Concomitant]
     Active Substance: FUROSEMIDE
     Indication: MULTIPLE ALLERGIES
     Route: 048
     Dates: start: 2013

REACTIONS (10)
  - Amnesia [Unknown]
  - Pharyngeal oedema [Unknown]
  - Musculoskeletal discomfort [Unknown]
  - Asthenia [Unknown]
  - Body height decreased [Unknown]
  - Palpitations [Unknown]
  - Coronary artery occlusion [Unknown]
  - Dizziness [Unknown]
  - Condition aggravated [Unknown]
  - Fatigue [Unknown]
